FAERS Safety Report 7503065-3 (Version None)
Quarter: 2011Q2

REPORT INFORMATION
  Report Type: 
  Country: None (occurrence: None)
  Receive Date: 20110525
  Receipt Date: 20101007
  Transmission Date: 20111010
  Serious: No
  Sender: FDA-Public Use
  Company Number: US-NOVEN-ALL1-2010-05278

PATIENT
  Sex: Male
  Weight: 18.141 kg

DRUGS (5)
  1. RISPERDAL [Concomitant]
     Dosage: 1 MG, 1X/DAY:QD (IN AM)
     Route: 048
     Dates: start: 20090101
  2. DAYTRANA [Suspect]
     Dosage: 20 MG, 1X/DAY:QD
     Dates: start: 20100801
  3. DAYTRANA [Suspect]
     Dosage: 10 MG, 1X/DAY:QD
     Dates: start: 20100101, end: 20100701
  4. RISPERDAL [Concomitant]
     Dosage: .75 MG, 1X/DAY:QD (IN PM)
     Route: 048
     Dates: start: 20090101
  5. MELATONIN [Concomitant]
     Dosage: 1 MG, 1X/DAY:QD (IN PM)
     Route: 048

REACTIONS (4)
  - WRONG TECHNIQUE IN DRUG USAGE PROCESS [None]
  - DRUG ADMINISTERED AT INAPPROPRIATE SITE [None]
  - DRUG INEFFECTIVE [None]
  - PRODUCT ADHESION ISSUE [None]
